FAERS Safety Report 8927926 (Version 1)
Quarter: 2012Q4

REPORT INFORMATION
  Report Type: Spontaneous
  Country: US (occurrence: None)
  Receive Date: 20121126
  Receipt Date: 20121126
  Transmission Date: 20130627
  Serious: Yes (Hospitalization)
  Sender: FDA-Public Use
  Company Number: None

PATIENT
  Age: 75 Year
  Sex: Male
  Weight: 86.2 kg

DRUGS (1)
  1. CARBIDOPA/LEVODOPA [Suspect]
     Indication: PARKINSON^S DISEASE
     Dosage: 1 TAB TID PO
     Dates: start: 20120223, end: 20121117

REACTIONS (1)
  - Syncope [None]
